FAERS Safety Report 6274409-8 (Version None)
Quarter: 2009Q3

REPORT INFORMATION
  Report Type: 
  Country: None (occurrence: None)
  Receive Date: 20090720
  Receipt Date: 20090707
  Transmission Date: 20100115
  Serious: Yes (Life-Threatening)
  Sender: FDA-Public Use
  Company Number: JP-SANOFI-SYNTHELABO-A01200907215

PATIENT
  Age: 70 Year
  Sex: Male

DRUGS (5)
  1. BEVACIZUMAB [Suspect]
     Dosage: UNK
     Route: 041
     Dates: start: 20090707, end: 20090707
  2. FLUOROURACIL [Suspect]
     Dosage: UNK
     Route: 040
  3. FLUOROURACIL [Suspect]
     Dosage: UNK
     Route: 041
  4. CALCIUM LEVOFOLINATE [Suspect]
     Dosage: UNK
     Route: 041
     Dates: start: 20090707, end: 20090707
  5. OXALIPLATIN [Suspect]
     Dosage: UNK
     Route: 041
     Dates: start: 20090707, end: 20090707

REACTIONS (1)
  - SHOCK [None]
